FAERS Safety Report 17835107 (Version 1)
Quarter: 2020Q2

REPORT INFORMATION
  Report Type: Report from Study
  Country: DE (occurrence: DE)
  Receive Date: 20200528
  Receipt Date: 20200528
  Transmission Date: 20200714
  Serious: Yes (Death)
  Sender: FDA-Public Use
  Company Number: DE-MYLANLABS-2020M1052019

PATIENT
  Sex: Female

DRUGS (4)
  1. BEVACIZUMAB. [Suspect]
     Active Substance: BEVACIZUMAB
     Dosage: 15 MILLIGRAM/KILOGRAM, MAINTENANCE THERAPY WITH IV BEVACIZUMAB 15 MG/KG EVERY 3 WEEKS
     Route: 042
  2. CARBOPLATIN. [Suspect]
     Active Substance: CARBOPLATIN
     Indication: OVARIAN CANCER RECURRENT
     Dosage: CARBOPLATIN AUC 5 ON DAY 1, AND REPEATED EVERY 4 WEEKS FOR UP TO SIX CYCLES MAXIMUM
     Route: 042
  3. DOXORUBICIN [Suspect]
     Active Substance: DOXORUBICIN
     Indication: OVARIAN CANCER RECURRENT
     Dosage: 30 MILLIGRAM/SQ. METER, IV DOXORUBICIN-LIPOSOMAL [PEGYLATED LIPOSOMAL DOXORUBICIN] 30 MG/M 2 ON..
     Route: 042
  4. BEVACIZUMAB. [Suspect]
     Active Substance: BEVACIZUMAB
     Indication: OVARIAN CANCER RECURRENT
     Dosage: IV BEVACIZUMAB 10 MG/KG ON DAYS 1 AND 15..
     Route: 042

REACTIONS (1)
  - Large intestine perforation [Fatal]
